FAERS Safety Report 4683784-7 (Version None)
Quarter: 2005Q2

REPORT INFORMATION
  Report Type: 
  Country: None (occurrence: None)
  Receive Date: 20050607
  Receipt Date: 20040503
  Transmission Date: 20051028
  Serious: Yes (Hospitalization, Other)
  Sender: FDA-Public Use
  Company Number: PHHO2004BR06415

PATIENT
  Age: 54 Year
  Sex: Male
  Weight: 60 kg

DRUGS (3)
  1. NEORAL [Suspect]
     Indication: RENAL TRANSPLANT
     Dosage: NOT REPORTED
     Route: 048
  2. ASPIRIN [Concomitant]
     Dosage: 100 MG ONCE
     Route: 048
     Dates: start: 20040413
  3. FTY720 VS MYCOPHENOLATE MOFETIL [Suspect]
     Indication: RENAL TRANSPLANT
     Dosage: CODE NOT BROKEN
     Route: 048
     Dates: start: 20040408

REACTIONS (12)
  - CATHETER PLACEMENT [None]
  - COMPLICATIONS OF TRANSPLANTED KIDNEY [None]
  - DRUG INEFFECTIVE [None]
  - ESCHERICHIA INFECTION [None]
  - GRAFT LOSS [None]
  - HAEMATURIA [None]
  - NEPHROPATHY TOXIC [None]
  - PURULENT DISCHARGE [None]
  - RENAL TUBULAR NECROSIS [None]
  - URETHRITIS [None]
  - URINARY BLADDER HAEMORRHAGE [None]
  - URINARY TRACT INFECTION [None]
